FAERS Safety Report 6429929-X (Version None)
Quarter: 2009Q4

REPORT INFORMATION
  Report Type: 
  Country: None (occurrence: None)
  Receive Date: 20091104
  Receipt Date: 20091104
  Transmission Date: 20100525
  Serious: Yes (Other)
  Sender: FDA-Public Use
  Company Number: None

PATIENT
  Age: 7 Year
  Sex: Male
  Weight: 50 kg

DRUGS (3)
  1. SINGULAIR [Suspect]
     Indication: ASTHMA
     Dosage: 5 MG 1/DAY PO
     Route: 048
     Dates: start: 20090112, end: 20090210
  2. SINGULAIR [Suspect]
     Indication: ASTHMA
     Dosage: 5 MG 1/DAY PO
     Route: 048
     Dates: start: 20091014, end: 20091030
  3. SINGULAIR [Suspect]

REACTIONS (3)
  - DEPRESSION [None]
  - IRRITABILITY [None]
  - SELF-INJURIOUS IDEATION [None]
